FAERS Safety Report 23141660 (Version 5)
Quarter: 2025Q1

REPORT INFORMATION
  Report Type: Report from Study
  Country: KR (occurrence: KR)
  Receive Date: 20231103
  Receipt Date: 20250325
  Transmission Date: 20250408
  Serious: Yes (Other)
  Sender: TAKEDA
  Company Number: KR-TAKEDA-2023TUS104906

PATIENT
  Sex: Female

DRUGS (11)
  1. BRIGATINIB [Suspect]
     Active Substance: BRIGATINIB
     Indication: Non-small cell lung cancer
     Dosage: 90 MILLIGRAM, QD
     Dates: start: 20230213, end: 20230219
  2. BRIGATINIB [Suspect]
     Active Substance: BRIGATINIB
     Dosage: 180 MILLIGRAM, QD
     Dates: start: 20230220
  3. EZETIMIBE\PITAVASTATIN CALCIUM [Concomitant]
     Active Substance: EZETIMIBE\PITAVASTATIN CALCIUM
     Indication: Hyperlipidaemia
     Dates: start: 20230208, end: 20230301
  4. Amvaltan [Concomitant]
     Indication: Hypertension
     Dates: start: 20230208, end: 20230301
  5. Panpiroc [Concomitant]
     Indication: Gastritis prophylaxis
  6. SYNTHROID [Concomitant]
     Active Substance: LEVOTHYROXINE SODIUM
     Indication: Hypothyroidism
     Dates: start: 20230208, end: 20230531
  7. Epocillin [Concomitant]
     Indication: Pleural effusion
     Dates: start: 20230206, end: 20230214
  8. Disolrin [Concomitant]
     Indication: Pleural effusion
     Dates: start: 20230207, end: 20230213
  9. Danacough [Concomitant]
     Indication: Pleural effusion
     Dates: start: 20230208, end: 20230213
  10. CODEINE PHOSPHATE [Concomitant]
     Active Substance: CODEINE PHOSPHATE
     Indication: Pleural effusion
     Dates: start: 20230207, end: 20230405
  11. LEVODROPROPIZINE [Concomitant]
     Active Substance: LEVODROPROPIZINE
     Indication: Cough
     Dates: start: 20230223, end: 20230412

REACTIONS (1)
  - Bipolar II disorder [Recovering/Resolving]

NARRATIVE: CASE EVENT DATE: 20230302
